FAERS Safety Report 6538727-8 (Version None)
Quarter: 2010Q1

REPORT INFORMATION
  Report Type: 
  Country: None (occurrence: None)
  Receive Date: 20100114
  Receipt Date: 20100114
  Transmission Date: 20100710
  Serious: Yes (Hospitalization)
  Sender: FDA-Public Use
  Company Number: None

PATIENT
  Age: 28 Year
  Sex: Male
  Weight: 80.29 kg

DRUGS (2)
  1. HYDROMORPHONE HCL [Suspect]
     Indication: PAIN
     Dosage: 1 MG PRN IM
     Route: 030
     Dates: start: 20090604
  2. MORPHINE [Suspect]
     Indication: PAIN
     Dosage: 2 MG PRN IM
     Route: 030
     Dates: start: 20090604

REACTIONS (2)
  - DIZZINESS [None]
  - PRESYNCOPE [None]
